FAERS Safety Report 8974210 (Version 7)
Quarter: 2015Q3

REPORT INFORMATION
  Report Type: Spontaneous
  Country: JP (occurrence: None)
  Receive Date: 20121213
  Receipt Date: 20150810
  Transmission Date: 20151125
  Serious: Yes (Hospitalization, Disabling)
  Sender: FDA-Public Use
  Company Number: 2009JP007232

PATIENT
  Age: 28 Year
  Sex: Female
  Weight: 46 kg

DRUGS (20)
  1. BLOSTAR M (FAMOTIDINE) [Concomitant]
  2. SLOW-FE (FERROUS SULFATE) [Concomitant]
  3. HYALEIN (HYALURONATE SODIUM) [Concomitant]
  4. MUCOSTA (REBAMIPIDE) [Concomitant]
  5. PREDONINE (PREDNISOLONE SODIUM SUCCINATE) [Concomitant]
  6. PROGRAF [Suspect]
     Active Substance: TACROLIMUS\TACROLIMUS ANHYDROUS
     Indication: RHEUMATOID ARTHRITIS
     Route: 048
     Dates: start: 20090327, end: 20090402
  7. ASPARA-CA (ASPARTATE CALCIUM) [Concomitant]
  8. ITRIZOLE (ITRACONAZOLE) [Concomitant]
  9. BONALON (ALENDRONATE SODIUM) [Concomitant]
  10. LORFENAMIN (LOXOPROFEN SODIUM) [Concomitant]
  11. DEPAS (ETIZOLAM) [Concomitant]
  12. BREDININ (MIZORIBINE) [Concomitant]
     Active Substance: MIZORIBINE
  13. ENDOXAN (CYCLOPHOSPHAMIDE) [Concomitant]
     Active Substance: CYCLOPHOSPHAMIDE
  14. PREDNISOLONE. [Suspect]
     Active Substance: PREDNISOLONE
     Indication: LUPUS NEPHRITIS
     Route: 048
     Dates: end: 20090401
  15. METHYCOBAL (MECOBALAMIN) [Concomitant]
  16. BACTRAMIN (SULFAMETHOXAZOLE, TRIMETHOPRIM) [Concomitant]
  17. SOLU-MEDROL [Suspect]
     Active Substance: METHYLPREDNISOLONE SODIUM SUCCINATE
     Indication: RASH
     Dosage: IV NOS.
     Route: 042
  18. FUNGIZONE (AMPHOTERICIN B) SYRUP [Concomitant]
  19. BAYASPIRIN (ACETYLSALICYLIC ACID) (ACETYLSALICYLIC ACID) [Concomitant]
     Active Substance: ASPIRIN
  20. PROGRAF [Suspect]
     Active Substance: TACROLIMUS\TACROLIMUS ANHYDROUS
     Indication: LUPUS NEPHRITIS
     Route: 048
     Dates: start: 20090327, end: 20090402

REACTIONS (10)
  - Intracranial hypotension [None]
  - Palpitations [None]
  - Pruritus [None]
  - Anxiety disorder [None]
  - Pruritus generalised [None]
  - Transplant [None]
  - Osteonecrosis [None]
  - Death of relative [None]
  - Rash [None]
  - Paraesthesia [None]

NARRATIVE: CASE EVENT DATE: 20090402
